FAERS Safety Report 5689865-3 (Version None)
Quarter: 2008Q1

REPORT INFORMATION
  Report Type: 
  Country: None (occurrence: None)
  Receive Date: 20080331
  Receipt Date: 20080331
  Transmission Date: 20080703
  Serious: Yes (Hospitalization)
  Sender: FDA-Public Use
  Company Number: None

PATIENT
  Age: 85 Year
  Sex: Male

DRUGS (2)
  1. MOXIFLOXACIN HCL [Suspect]
     Indication: PNEUMONIA
     Dosage: 400MG EVERY DAY PO
     Route: 048
     Dates: start: 20080109, end: 20080116
  2. MOXIFLOXACIN HCL [Suspect]
     Dosage: 400MG EVERY DAY IV
     Route: 042
     Dates: start: 20080107, end: 20080108

REACTIONS (1)
  - CLOSTRIDIUM DIFFICILE COLITIS [None]
